FAERS Safety Report 5670176-7 (Version None)
Quarter: 2008Q1

REPORT INFORMATION
  Report Type: 
  Country: None (occurrence: None)
  Receive Date: 20080312
  Receipt Date: 20080228
  Transmission Date: 20080703
  Serious: Yes (Life-Threatening)
  Sender: FDA-Public Use
  Company Number: 18476

PATIENT
  Sex: Male

DRUGS (1)
  1. METHOTREXATE [Suspect]

REACTIONS (6)
  - BACK PAIN [None]
  - DYSPNOEA [None]
  - HYPERTENSIVE CRISIS [None]
  - MUSCLE RIGIDITY [None]
  - PARAESTHESIA [None]
  - PERINEAL PAIN [None]
